FAERS Safety Report 7286211-9 (Version None)
Quarter: 2011Q1

REPORT INFORMATION
  Report Type: 
  Country: None (occurrence: None)
  Receive Date: 20110210
  Receipt Date: 20110131
  Transmission Date: 20110831
  Serious: Yes (Death)
  Sender: FDA-Public Use
  Company Number: PHHY2009JP12968

PATIENT
  Sex: Male
  Weight: 38 kg

DRUGS (4)
  1. EXJADE [Suspect]
     Indication: APLASIA PURE RED CELL
     Dosage: 750 MG/DAY
     Route: 048
     Dates: start: 20080805, end: 20080825
  2. EXJADE [Suspect]
     Indication: IRON OVERLOAD
  3. RED BLOOD CELLS, CONCENTRATED [Concomitant]
     Dosage: 2 U, UNK
     Dates: start: 20080805, end: 20080910
  4. NEORAL [Suspect]
     Indication: APLASIA PURE RED CELL
     Dosage: 150 MG DAILY
     Route: 048
     Dates: start: 20080325, end: 20080825

REACTIONS (4)
  - LYMPHOCYTE COUNT DECREASED [None]
  - PLATELET COUNT DECREASED [None]
  - NAUSEA [None]
  - PNEUMONIA [None]
